FAERS Safety Report 6204134-0 (Version None)
Quarter: 2009Q2

REPORT INFORMATION
  Report Type: 
  Country: None (occurrence: None)
  Receive Date: 20090526
  Receipt Date: 20090526
  Transmission Date: 20091009
  Serious: No
  Sender: FDA-Public Use
  Company Number: None

PATIENT
  Age: 55 Year
  Sex: Female
  Weight: 86.1834 kg

DRUGS (1)
  1. COPPERTONE SPORT SUNSCREEN 30SPF SCHERNING-PLOUGH [Suspect]
     Indication: PROPHYLAXIS AGAINST SOLAR RADIATION
     Dosage: APPLY LIBERALLY TO SKIN REAPPLY AS NEEDE PO ONE TIME
     Route: 048
     Dates: start: 20090521, end: 20090521

REACTIONS (6)
  - CHEST DISCOMFORT [None]
  - DYSPNOEA [None]
  - EYE SWELLING [None]
  - PRURITUS [None]
  - SKIN BURNING SENSATION [None]
  - SWELLING FACE [None]
